FAERS Safety Report 5587635-8 (Version None)
Quarter: 2008Q1

REPORT INFORMATION
  Report Type: 
  Country: None (occurrence: None)
  Receive Date: 20080108
  Receipt Date: 20080101
  Transmission Date: 20080703
  Serious: Yes (Other)
  Sender: FDA-Public Use
  Company Number: 163-20785-07030183

PATIENT
  Age: 57 Year
  Sex: Male
  Weight: 101.4 kg

DRUGS (12)
  1. THALOMID [Suspect]
     Indication: SARCOMA
     Dosage: 200 MG, QD, DAYS 7-21, 28-42, ORAL
     Route: 048
     Dates: start: 20070129, end: 20070301
  2. MESNA [Suspect]
     Indication: SARCOMA
     Dosage: 2500 MG/M2, X4 DAYS (DAYS 1-4, 22-25, 43-36), CIV
     Dates: start: 20070123
  3. DOXORUBICIN HCL [Suspect]
     Indication: SARCOMA
     Dosage: 20 MG/M2, X3 DAYS (DAYS 1-3, 22-24, 43-45), CIV
     Dates: start: 20070123
  4. IFOSFAMIDE [Suspect]
     Indication: SARCOMA
     Dosage: 2500 MG/M2, X3 DAYS (DAYS 1-3, 22-24, 43-45), CIV
     Dates: start: 20070123
  5. DTIC-DOME [Suspect]
     Indication: SARCOMA
     Dosage: 225 MG/M2, X3 DAYS (DAYS 1-3, 22-24, 43-45), CIV
     Dates: start: 20070123
  6. G-CSF (GRANULOCYTE COLONY STIMULATING FACTOR) [Suspect]
     Indication: SARCOMA
     Dosage: 5 FEG/KG, QD, STARTING DAY 5 UNTIL ANC}10000, SUBCUTANEOUS
     Route: 058
     Dates: start: 20070123
  7. MORPHINE [Concomitant]
  8. DILAUDID [Concomitant]
  9. CELEBREX [Concomitant]
  10. CRESTOR [Concomitant]
  11. NEXIUM [Concomitant]
  12. ZESTRIL [Concomitant]

REACTIONS (23)
  - ALANINE AMINOTRANSFERASE ABNORMAL [None]
  - BLOOD ALKALINE PHOSPHATASE ABNORMAL [None]
  - BONE PAIN [None]
  - CONSTIPATION [None]
  - DEPRESSION [None]
  - DIARRHOEA [None]
  - FATIGUE [None]
  - FLUSHING [None]
  - HEADACHE [None]
  - HYPERBILIRUBINAEMIA [None]
  - HYPERGLYCAEMIA [None]
  - HYPERSENSITIVITY [None]
  - HYPOMAGNESAEMIA [None]
  - HYPONATRAEMIA [None]
  - HYPOPHOSPHATAEMIA [None]
  - LACRIMATION INCREASED [None]
  - LYMPHOPENIA [None]
  - NAUSEA [None]
  - PAIN IN EXTREMITY [None]
  - PULMONARY EMBOLISM [None]
  - STOMATITIS [None]
  - THROMBOSIS [None]
  - VISION BLURRED [None]
